FAERS Safety Report 15540948 (Version 1)
Quarter: 2018Q4

REPORT INFORMATION
  Report Type: Spontaneous
  Country: GR (occurrence: GR)
  Receive Date: 20181023
  Receipt Date: 20181023
  Transmission Date: 20190205
  Serious: Yes (Other)
  Sender: FDA-Public Use
  Company Number: GR-MYLANLABS-2018M1077204

PATIENT
  Age: 47 Year
  Sex: Female

DRUGS (3)
  1. ROPIVACAINE. [Suspect]
     Active Substance: ROPIVACAINE HYDROCHLORIDE
     Indication: LOCAL ANAESTHESIA
     Route: 065
  2. PETHIDINE [Concomitant]
     Active Substance: MEPERIDINE
     Indication: POSTOPERATIVE ANALGESIA
  3. PARACETAMOL [Concomitant]
     Active Substance: ACETAMINOPHEN
     Indication: POSTOPERATIVE ANALGESIA

REACTIONS (2)
  - Paroxysmal sympathetic hyperactivity [Recovered/Resolved]
  - Systemic toxicity [Recovered/Resolved]
